FAERS Safety Report 15604444 (Version 1)
Quarter: 2018Q4

REPORT INFORMATION
  Report Type: Report from Study
  Country: CA (occurrence: CA)
  Receive Date: 20181110
  Receipt Date: 20181110
  Transmission Date: 20190205
  Serious: Yes (Death)
  Sender: FDA-Public Use
  Company Number: PHHY2018CA149018

PATIENT
  Age: 59 Year
  Sex: Female

DRUGS (1)
  1. REVOLADE [Suspect]
     Active Substance: ELTROMBOPAG
     Indication: APLASTIC ANAEMIA
     Dosage: 150 MG, UNK
     Route: 048
     Dates: start: 20170602

REACTIONS (1)
  - Death [Fatal]

NARRATIVE: CASE EVENT DATE: 20171214
